FAERS Safety Report 7640251-6 (Version None)
Quarter: 2011Q3

REPORT INFORMATION
  Report Type: 
  Country: None (occurrence: None)
  Receive Date: 20110728
  Receipt Date: 20090213
  Transmission Date: 20111222
  Serious: Yes (Death, Hospitalization, Other)
  Sender: FDA-Public Use
  Company Number: US-BAYER-200912885NA

PATIENT
  Age: 65 Year
  Sex: Male
  Weight: 104 kg

DRUGS (20)
  1. PLATELETS [Concomitant]
     Dosage: 2 U, UNK
     Route: 042
     Dates: start: 20061126
  2. TRASYLOL [Suspect]
     Indication: AORTIC DISSECTION
     Dosage: 1 ML, TEST DOSE
     Route: 042
     Dates: start: 20061126, end: 20061126
  3. VERAPAMIL [Concomitant]
     Dosage: 240 MG, LONG TERM
     Route: 048
  4. HEPARIN [Concomitant]
     Dosage: UNK
     Dates: start: 20061126
  5. PROTAMINE SULFATE [Concomitant]
     Dosage: UNK
     Dates: start: 20061126
  6. CLONAZEPAM [Concomitant]
     Dosage: 1 MG, LONG TERM
     Route: 048
  7. FENTANYL [Concomitant]
     Dosage: UNK
     Dates: start: 20061126
  8. TRASYLOL [Suspect]
     Dosage: 50 ML/HR, INFUSION DOSE
     Route: 042
     Dates: start: 20061126, end: 20061126
  9. ARANESP [Concomitant]
     Indication: RENAL FAILURE
     Dosage: LONG TERM
  10. PAVULON [Concomitant]
     Dosage: UNK
     Dates: start: 20061126
  11. MIDAZOLAM HCL [Concomitant]
     Dosage: UNK
     Dates: start: 20061126
  12. INSULIN [Concomitant]
     Dosage: UNK
     Dates: start: 20061126
  13. TRASYLOL [Suspect]
     Dosage: 200 ML, LOADING DOSE
     Route: 042
     Dates: start: 20061126, end: 20061126
  14. TOPROL-XL [Concomitant]
     Dosage: 50 MG, UNK
     Route: 048
  15. FLOMAX [Concomitant]
     Dosage: 0.4 MG, LONG TERM
     Route: 048
  16. CODEINE SULFATE [Concomitant]
     Dosage: 15 MG, LONG TERM
     Route: 048
  17. CELEBREX [Concomitant]
  18. RED BLOOD CELLS [Concomitant]
     Dosage: 15 U, UNK
     Route: 042
     Dates: start: 20061126
  19. PLASMA [Concomitant]
     Dosage: 6 U, UNK
     Route: 042
     Dates: start: 20061126
  20. LOVASTATIN [Concomitant]
     Dosage: 20 MG, LONG TERM
     Route: 048

REACTIONS (8)
  - RENAL FAILURE ACUTE [None]
  - UNEVALUABLE EVENT [None]
  - PAIN [None]
  - INJURY [None]
  - RENAL FAILURE CHRONIC [None]
  - RESPIRATORY FAILURE [None]
  - MYOCARDIAL INFARCTION [None]
  - RENAL FAILURE [None]
